FAERS Safety Report 16248549 (Version 1)
Quarter: 2019Q2

REPORT INFORMATION
  Report Type: Spontaneous
  Country: IT (occurrence: IT)
  Receive Date: 20190429
  Receipt Date: 20190429
  Transmission Date: 20190711
  Serious: Yes (Hospitalization)
  Sender: FDA-Public Use
  Company Number: IT-DEXPHARM-20190284

PATIENT
  Age: 77 Year
  Sex: Female
  Weight: 60 kg

DRUGS (1)
  1. CHLORHEXIDINE HYDROCHLORIDE [Suspect]
     Active Substance: CHLORHEXIDINE HYDROCHLORIDE
     Indication: INFECTION PROPHYLAXIS
     Route: 003
     Dates: start: 20190403, end: 20190403

REACTIONS (2)
  - Laryngeal oedema [Recovered/Resolved]
  - Erythema [Recovered/Resolved]

NARRATIVE: CASE EVENT DATE: 20190403
